FAERS Safety Report 15059253 (Version 1)
Quarter: 2018Q2

REPORT INFORMATION
  Report Type: Spontaneous
  Country: NL (occurrence: NL)
  Receive Date: 20180625
  Receipt Date: 20180625
  Transmission Date: 20180711
  Serious: Yes (Other)
  Sender: FDA-Public Use
  Company Number: NL-SA-2018SA157806

PATIENT
  Age: 69 Year
  Sex: Female
  Weight: 64 kg

DRUGS (14)
  1. FOLIC ACID. [Concomitant]
     Active Substance: FOLIC ACID
     Indication: RHEUMATOID ARTHRITIS
     Dosage: 10 MG, QW
  2. VIDISIC CARBOGEL [Concomitant]
  3. NAPROXEN. [Concomitant]
     Active Substance: NAPROXEN
     Dosage: 500 MG
  4. SALBUTAMOL [Concomitant]
     Active Substance: ALBUTEROL
     Indication: ASTHMA
     Dosage: 1 DF
  5. FUCITHALMIC [Concomitant]
     Active Substance: FUSIDIC ACID
     Indication: CONJUNCTIVITIS ALLERGIC
     Dosage: UNK UNK, QM
  6. ARTELAC EDO [Concomitant]
  7. PLAQUENIL [HYDROXYCHLOROQUINE SULFATE] [Concomitant]
     Indication: RHEUMATOID ARTHRITIS
     Dosage: 200 UNK, Q12H
  8. LEVOCETIRIZINE [Concomitant]
     Active Substance: LEVOCETIRIZINE
     Indication: ATOPY
     Dosage: 5 MG, QD
  9. METHOTREXATE. [Concomitant]
     Active Substance: METHOTREXATE
     Indication: RHEUMATOID ARTHRITIS
     Dosage: 20 MG, QW
  10. DUPIXENT [Suspect]
     Active Substance: DUPILUMAB
     Indication: ECZEMA
     Dosage: 300 MG
     Dates: start: 20171215, end: 20180323
  11. KETOTIFEN [Concomitant]
     Active Substance: KETOTIFEN
     Indication: CONJUNCTIVITIS ALLERGIC
  12. FOSTER [BECLOMETASONE DIPROPIONATE;FORMOTEROL FUMARATE] [Concomitant]
     Dosage: 1 DF, QD
  13. HYDROXYZINE [Concomitant]
     Active Substance: HYDROXYZINE HYDROCHLORIDE
     Indication: ATOPY
     Dosage: 25 MG, QD
  14. CALCIUM [Concomitant]
     Active Substance: CALCIUM
     Dosage: 500 MG, QD

REACTIONS (5)
  - Ocular hyperaemia [Unknown]
  - Eye pruritus [Unknown]
  - Lacrimation increased [Unknown]
  - Visual impairment [Unknown]
  - Corneal degeneration [Recovering/Resolving]

NARRATIVE: CASE EVENT DATE: 201801
